FAERS Safety Report 6546917-3 (Version None)
Quarter: 2010Q1

REPORT INFORMATION
  Report Type: 
  Country: None (occurrence: None)
  Receive Date: 20100122
  Receipt Date: 20100112
  Transmission Date: 20100710
  Serious: Yes (Hospitalization)
  Sender: FDA-Public Use
  Company Number: JP-PFIZER INC-2009259320

PATIENT
  Age: 48 Year
  Sex: Male
  Weight: 50 kg

DRUGS (10)
  1. SUNITINIB MALATE [Suspect]
     Indication: GASTROINTESTINAL STROMAL TUMOUR
     Dosage: 50 MG, 1X/DAY
     Route: 048
     Dates: start: 20080910
  2. CALONAL [Concomitant]
     Route: 048
     Dates: end: 20081112
  3. ZEPOLAS [Concomitant]
     Dosage: UNK
     Route: 062
  4. PASTARON [Concomitant]
     Route: 062
     Dates: start: 20081003, end: 20081130
  5. ANTEBATE [Concomitant]
     Route: 062
     Dates: start: 20081104, end: 20081130
  6. LEPETAN [Concomitant]
     Dosage: UNK
     Route: 054
     Dates: start: 20081111
  7. MUCOSTA [Concomitant]
     Dosage: UNK
     Route: 048
     Dates: start: 20081111
  8. MOBIC [Concomitant]
     Route: 048
     Dates: start: 20081111, end: 20081112
  9. SOSEGON [Concomitant]
     Route: 042
     Dates: start: 20081109, end: 20081113
  10. ACUATIM [Concomitant]
     Route: 062
     Dates: start: 20080923, end: 20081021

REACTIONS (1)
  - PAIN IN EXTREMITY [None]
